FAERS Safety Report 23885708 (Version 1)
Quarter: 2024Q2

REPORT INFORMATION
  Report Type: Report from Study
  Country: US (occurrence: US)
  Receive Date: 20240522
  Receipt Date: 20240522
  Transmission Date: 20240717
  Serious: Yes (Hospitalization)
  Sender: FDA-Public Use
  Company Number: US-ABBVIE-5765658

PATIENT
  Age: 50 Year
  Sex: Female

DRUGS (7)
  1. SKYRIZI [Suspect]
     Active Substance: RISANKIZUMAB-RZAA
     Indication: Crohn^s disease
     Dosage: FORM STRENGTH :360MG/2.4M WEEK 12
     Route: 058
     Dates: start: 20230706, end: 20230706
  2. SKYRIZI [Suspect]
     Active Substance: RISANKIZUMAB-RZAA
     Dosage: FORM STRENGTH :360MG/2.4M
     Route: 058
  3. SKYRIZI [Suspect]
     Active Substance: RISANKIZUMAB-RZAA
     Dosage: FORM STRENGTH :360MG/2.4M
     Route: 058
  4. SHINGRIX [Suspect]
     Active Substance: RECOMBINANT VARICELLA ZOSTER VIRUS (VZV) GLYCOPROTEIN E
     Indication: Product used for unknown indication
     Route: 065
     Dates: start: 202404
  5. SKYRIZI [Suspect]
     Active Substance: RISANKIZUMAB-RZAA
     Indication: Crohn^s disease
     Dosage: WEEK 0
     Route: 042
     Dates: start: 202304, end: 202304
  6. SKYRIZI [Suspect]
     Active Substance: RISANKIZUMAB-RZAA
     Indication: Crohn^s disease
     Dosage: WEEK 4
     Route: 042
  7. SKYRIZI [Suspect]
     Active Substance: RISANKIZUMAB-RZAA
     Indication: Crohn^s disease
     Dosage: WEEK 8
     Route: 042

REACTIONS (13)
  - Gait disturbance [Recovered/Resolved]
  - Haematochezia [Recovering/Resolving]
  - Gout [Recovered/Resolved]
  - Constipation [Not Recovered/Not Resolved]
  - Pyrexia [Recovered/Resolved]
  - Peripheral swelling [Recovering/Resolving]
  - Inflammatory marker increased [Unknown]
  - Illness [Recovered/Resolved]
  - Blood uric acid increased [Recovered/Resolved]
  - Localised infection [Recovered/Resolved]
  - Pain in extremity [Recovering/Resolving]
  - Injection site reaction [Recovered/Resolved]
  - Osteomyelitis [Recovered/Resolved]

NARRATIVE: CASE EVENT DATE: 20240401
